FAERS Safety Report 25405905 (Version 1)
Quarter: 2025Q2

REPORT INFORMATION
  Report Type: Spontaneous
  Country: US (occurrence: None)
  Receive Date: 20250606
  Receipt Date: 20250606
  Transmission Date: 20250717
  Serious: Yes (Hospitalization)
  Sender: FDA-CTU
  Company Number: None

PATIENT
  Age: 62 Year
  Sex: Female
  Weight: 56.8 kg

DRUGS (2)
  1. CAPECITABINE [Suspect]
     Active Substance: CAPECITABINE
  2. ELOXATIN [Suspect]
     Active Substance: OXALIPLATIN

REACTIONS (8)
  - Dysphagia [None]
  - Laryngeal discomfort [None]
  - Feeling abnormal [None]
  - Dysphonia [None]
  - Hypertension [None]
  - Dyspnoea [None]
  - Hyperhidrosis [None]
  - Anxiety [None]

NARRATIVE: CASE EVENT DATE: 20250604
